FAERS Safety Report 5587464-5 (Version None)
Quarter: 2008Q1

REPORT INFORMATION
  Report Type: 
  Country: None (occurrence: None)
  Receive Date: 20080110
  Receipt Date: 20071219
  Transmission Date: 20080703
  Serious: No
  Sender: FDA-Public Use
  Company Number: US-BOEHRINGER INGELHEIM PHARMACEUTICALS, INC.-2007-BP-26580BP

PATIENT
  Sex: Female

DRUGS (3)
  1. SPIRIVA [Suspect]
     Route: 055
     Dates: start: 20071119
  2. AVELOX [Concomitant]
  3. PREDNISONE TAB [Concomitant]

REACTIONS (1)
  - RASH [None]
